FAERS Safety Report 6011370-5 (Version None)
Quarter: 2008Q4

REPORT INFORMATION
  Report Type: 
  Country: None (occurrence: None)
  Receive Date: 20081218
  Receipt Date: 20081203
  Transmission Date: 20090506
  Serious: Yes (Other)
  Sender: FDA-Public Use
  Company Number: US-GENENTECH-273467

PATIENT
  Sex: Female

DRUGS (7)
  1. BLINDED BEVACIZUMAB [Suspect]
     Indication: BREAST CANCER METASTATIC
     Dosage: 10 MG/KG, Q4W
     Route: 042
     Dates: start: 20080417
  2. BLINDED PLACEBO [Suspect]
     Indication: BREAST CANCER METASTATIC
     Dosage: 10 MG/KG, Q4W
     Route: 042
     Dates: start: 20080417
  3. BLINDED TRASTUZUMAB [Suspect]
     Indication: BREAST CANCER METASTATIC
     Dosage: 10 MG/KG, Q4W
     Route: 042
     Dates: start: 20080417
  4. HERCEPTIN [Suspect]
     Indication: BREAST CANCER METASTATIC
     Dosage: 4 MG/KG, Q4W
     Route: 042
     Dates: start: 20080417
  5. HERCEPTIN [Suspect]
     Dosage: 2 MG/KG, Q4W
     Route: 042
     Dates: start: 20080417
  6. PACLITAXEL [Concomitant]
     Indication: BREAST CANCER METASTATIC
     Dosage: 80 MG/M2, Q4W
     Route: 042
     Dates: start: 20080417
  7. CARBOPLATIN [Concomitant]
     Indication: BREAST CANCER METASTATIC
     Dosage: 2 AUC, Q4W
     Route: 042
     Dates: start: 20080417

REACTIONS (2)
  - FRACTURE [None]
  - PERIPHERAL SENSORY NEUROPATHY [None]
